FAERS Safety Report 22001399 (Version 2)
Quarter: 2023Q1

REPORT INFORMATION
  Report Type: Spontaneous
  Country: JP (occurrence: JP)
  Receive Date: 20230216
  Receipt Date: 20230221
  Transmission Date: 20230417
  Serious: Yes (Hospitalization, Other)
  Sender: FDA-Public Use
  Company Number: JP-BRISTOL-MYERS SQUIBB COMPANY-BMS-2022-028379

PATIENT
  Age: 8 Decade
  Sex: Male

DRUGS (4)
  1. YERVOY [Suspect]
     Active Substance: IPILIMUMAB
     Indication: Malignant melanoma
     Dosage: UNK
     Route: 041
     Dates: start: 202104
  2. OPDIVO [Suspect]
     Active Substance: NIVOLUMAB
     Indication: Malignant melanoma
     Route: 041
     Dates: start: 202104
  3. OPDIVO [Suspect]
     Active Substance: NIVOLUMAB
     Dosage: 240 MG, Q2W
     Route: 041
  4. OPDIVO [Suspect]
     Active Substance: NIVOLUMAB
     Route: 041

REACTIONS (8)
  - Malaise [Unknown]
  - Immune-mediated lung disease [Recovering/Resolving]
  - Immune-mediated enterocolitis [Recovering/Resolving]
  - Immune-mediated hypophysitis [Recovering/Resolving]
  - Immune-mediated adrenal insufficiency [Recovering/Resolving]
  - Immune-mediated dermatitis [Recovering/Resolving]
  - Dehydration [Recovering/Resolving]
  - Diarrhoea [Recovering/Resolving]

NARRATIVE: CASE EVENT DATE: 20220101
